FAERS Safety Report 5095854-2 (Version None)
Quarter: 2006Q3

REPORT INFORMATION
  Report Type: 
  Country: None (occurrence: None)
  Receive Date: 20060905
  Receipt Date: 20050706
  Transmission Date: 20061208
  Serious: Yes (Hospitalization)
  Sender: FDA-Public Use
  Company Number: JP-BAYER-200510322BYL

PATIENT
  Age: 75 Year
  Sex: Female

DRUGS (2)
  1. 8-HOUR BAYER [Suspect]
     Indication: LACUNAR INFARCTION
     Dosage: TOTAL DAILY DOSE: 100 MG  UNIT DOSE: 100 MG
     Route: 048
     Dates: start: 20050501
  2. DIOVAN [Suspect]
     Dosage: TOTAL DAILY DOSE: 80 MG  UNIT DOSE: 80 MG
     Route: 048
     Dates: start: 20050501

REACTIONS (2)
  - LYMPHOCYTE STIMULATION TEST POSITIVE [None]
  - RHABDOMYOLYSIS [None]
